FAERS Safety Report 6282222-0 (Version None)
Quarter: 2009Q3

REPORT INFORMATION
  Report Type: 
  Country: None (occurrence: None)
  Receive Date: 20090721
  Receipt Date: 20090721
  Transmission Date: 20100115
  Serious: Yes (Other)
  Sender: FDA-Public Use
  Company Number: None

PATIENT
  Sex: Female
  Weight: 72.5755 kg

DRUGS (2)
  1. ADVAIR DISKUS 250/50 [Suspect]
     Indication: BRONCHITIS
     Dosage: 1 INHALE 2 X DAY ORAL
     Route: 048
     Dates: start: 20081101, end: 20090401
  2. FLONASE [Concomitant]

REACTIONS (6)
  - CANDIDIASIS [None]
  - COUGH [None]
  - GLOSSITIS [None]
  - GLOSSODYNIA [None]
  - INCREASED UPPER AIRWAY SECRETION [None]
  - SWOLLEN TONGUE [None]
